FAERS Safety Report 6714533-6 (Version None)
Quarter: 2010Q2

REPORT INFORMATION
  Report Type: 
  Country: None (occurrence: None)
  Receive Date: 20100506
  Receipt Date: 20100427
  Transmission Date: 20101027
  Serious: Yes (Other)
  Sender: FDA-Public Use
  Company Number: US-WATSON-2010-05854

PATIENT

DRUGS (1)
  1. PROPRANOLOL [Suspect]
     Indication: INTENTIONAL OVERDOSE
     Dosage: UNK
     Route: 048

REACTIONS (3)
  - BRUGADA SYNDROME [None]
  - INTENTIONAL OVERDOSE [None]
  - POISONING [None]
